FAERS Safety Report 14757553 (Version 1)
Quarter: 2018Q2

REPORT INFORMATION
  Report Type: Spontaneous
  Country: DK (occurrence: DK)
  Receive Date: 20180413
  Receipt Date: 20180413
  Transmission Date: 20180711
  Serious: Yes (Other)
  Sender: FDA-Public Use
  Company Number: DK-TEVA-2018-DK-880284

PATIENT
  Age: 59 Year
  Sex: Male

DRUGS (4)
  1. HJERTEMAGNYL [Concomitant]
     Active Substance: ASPIRIN\MAGNESIUM OXIDE
     Indication: MYOCARDIAL INFARCTION
     Dosage: STYRKE: 75 MG
     Route: 048
     Dates: start: 20170916
  2. ATORVASTATIN TEVA [Suspect]
     Active Substance: ATORVASTATIN
     Indication: HYPERCHOLESTEROLAEMIA
     Dosage: STYRKE: 80 MG
     Route: 048
     Dates: start: 20170713, end: 20170921
  3. CLOPIDOGREL ^ACCORD^ [Concomitant]
     Indication: MYOCARDIAL INFARCTION
     Dosage: STYRKE: 75 MG
     Route: 048
     Dates: start: 20170916
  4. NITROLINGUAL [Concomitant]
     Active Substance: NITROGLYCERIN
     Indication: MYOCARDIAL INFARCTION
     Dosage: STRENGTH: 0.4 MG / DOSE - DOSAGE: 1 BREATH AS NEEDED ON / UNDER THE TONGUE BY PAIN
     Route: 060
     Dates: start: 20170916

REACTIONS (2)
  - Dermatitis exfoliative [Recovered/Resolved]
  - Urticaria [Recovered/Resolved]

NARRATIVE: CASE EVENT DATE: 20170921
